FAERS Safety Report 8927385 (Version 3)
Quarter: 2012Q4

REPORT INFORMATION
  Report Type: 
  Country: NL (occurrence: NL)
  Receive Date: 20121127
  Receipt Date: 20121129
  Transmission Date: 20130627
  Serious: Yes (Death, Life-Threatening)
  Sender: FDA-Public Use
  Company Number: NL-ASTRAZENECA-2012SE88638

PATIENT
  Sex: Male

DRUGS (1)
  1. BRILIQUE [Suspect]
     Dosage: LOADING DOSE
     Route: 048

REACTIONS (2)
  - Acute myocardial infarction [Fatal]
  - Drug dose omission [Fatal]
